APPROVED DRUG PRODUCT: TESSALON
Active Ingredient: BENZONATATE
Strength: 100MG
Dosage Form/Route: CAPSULE;ORAL
Application: N011210 | Product #001 | TE Code: AA
Applicant: PFIZER INC
Approved: Approved Prior to Jan 1, 1982 | RLD: Yes | RS: No | Type: RX